FAERS Safety Report 6163381-7 (Version None)
Quarter: 2009Q2

REPORT INFORMATION
  Report Type: 
  Country: None (occurrence: None)
  Receive Date: 20090420
  Receipt Date: 20090420
  Transmission Date: 20091009
  Serious: Yes (Hospitalization)
  Sender: FDA-Public Use
  Company Number: None

PATIENT
  Age: 66 Year
  Sex: Male

DRUGS (1)
  1. MOXIFLOXACIN HCL [Suspect]
     Indication: PNEUMONIA ASPIRATION
     Dosage: 400 MG EVERY DAY PO
     Route: 048
     Dates: start: 20081031, end: 20081105

REACTIONS (1)
  - CLOSTRIDIUM DIFFICILE COLITIS [None]
